FAERS Safety Report 5207512-1 (Version None)
Quarter: 2007Q1

REPORT INFORMATION
  Report Type: 
  Country: None (occurrence: None)
  Receive Date: 20070112
  Receipt Date: 20070111
  Transmission Date: 20070707
  Serious: Yes (Hospitalization)
  Sender: FDA-Public Use
  Company Number: US-BOEHRINGER INGELHEIM PHARMACEUTICALS, INC.-2007-DE-00190GD

PATIENT
  Age: 41 Year
  Sex: Female

DRUGS (3)
  1. CLONIDINE [Suspect]
     Indication: HYPERTENSION
  2. HYDROCHLOROTHIAZIDE [Suspect]
     Indication: HYPERTENSION
  3. PRAZOSIN HCL [Suspect]
     Indication: HYPERTENSION

REACTIONS (1)
  - HYPERTENSION [None]
